FAERS Safety Report 13019903 (Version 2)
Quarter: 2016Q4

REPORT INFORMATION
  Report Type: Spontaneous
  Country: US (occurrence: US)
  Receive Date: 20161212
  Receipt Date: 20161228
  Transmission Date: 20170207
  Serious: Yes (Other)
  Sender: FDA-Public Use
  Company Number: US-ROCHE-1765906

PATIENT
  Sex: Female

DRUGS (15)
  1. ACTEMRA [Suspect]
     Active Substance: TOCILIZUMAB
     Indication: RHEUMATOID ARTHRITIS
     Dosage: (20 ML)
     Route: 042
  2. LYRICA [Concomitant]
     Active Substance: PREGABALIN
  3. VITAMIN D3 [Concomitant]
     Active Substance: CHOLECALCIFEROL
  4. LEUCOVORIN. [Concomitant]
     Active Substance: LEUCOVORIN
  5. AMBIEN [Concomitant]
     Active Substance: ZOLPIDEM TARTRATE
  6. ACTEMRA [Suspect]
     Active Substance: TOCILIZUMAB
     Route: 042
     Dates: start: 20160608
  7. LEFLUNOMIDE. [Concomitant]
     Active Substance: LEFLUNOMIDE
  8. METHOCARBAMOL. [Concomitant]
     Active Substance: METHOCARBAMOL
  9. METHOTREXATE. [Concomitant]
     Active Substance: METHOTREXATE
  10. FOLIC ACID. [Concomitant]
     Active Substance: FOLIC ACID
  11. IMITREX [Concomitant]
     Active Substance: SUMATRIPTAN SUCCINATE
  12. OPANA [Concomitant]
     Active Substance: OXYMORPHONE HYDROCHLORIDE
  13. HYDROXYCHLOROQUINE [Concomitant]
     Active Substance: HYDROXYCHLOROQUINE
  14. COMPAZINE [Concomitant]
     Active Substance: PROCHLORPERAZINE MALEATE
  15. OXYCODONE [Concomitant]
     Active Substance: OXYCODONE

REACTIONS (2)
  - Rash vesicular [Unknown]
  - Toe amputation [Unknown]
